FAERS Safety Report 7707883-8 (Version None)
Quarter: 2011Q3

REPORT INFORMATION
  Report Type: 
  Country: None (occurrence: None)
  Receive Date: 20110824
  Receipt Date: 20110818
  Transmission Date: 20111222
  Serious: Yes (Other)
  Sender: FDA-Public Use
  Company Number: CA-MERCK-1108USA02433

PATIENT
  Age: 31 Month
  Sex: Male
  Weight: 15 kg

DRUGS (1)
  1. SINGULAIR [Suspect]
     Route: 048

REACTIONS (8)
  - CHEILITIS [None]
  - TONGUE ULCERATION [None]
  - LIP HAEMORRHAGE [None]
  - PRURITUS [None]
  - GINGIVAL BLEEDING [None]
  - SWOLLEN TONGUE [None]
  - SLEEP TERROR [None]
  - LIP SWELLING [None]
